FAERS Safety Report 4750256-0 (Version None)
Quarter: 2005Q3

REPORT INFORMATION
  Report Type: 
  Country: None (occurrence: None)
  Receive Date: 20050818
  Receipt Date: 20050812
  Transmission Date: 20060218
  Serious: Yes (Hospitalization)
  Sender: FDA-Public Use
  Company Number: 2005AD000049

PATIENT
  Age: 87 Year
  Sex: Female

DRUGS (7)
  1. KEFLEX [Suspect]
     Indication: DIVERTICULUM
     Dates: start: 20050407, end: 20050422
  2. SOTALOL HCL [Concomitant]
  3. FLAGYL [Concomitant]
  4. MAREVAN  BRITISH DRUG HOUSES [Concomitant]
  5. FUROSEMIDE [Concomitant]
  6. ZYLORIC   FAES [Concomitant]
  7. IMOVANE [Concomitant]

REACTIONS (9)
  - BACTERIA STOOL IDENTIFIED [None]
  - BLOOD ALBUMIN INCREASED [None]
  - BLOOD POTASSIUM DECREASED [None]
  - CLOSTRIDIUM DIFFICILE TOXIN TEST POSITIVE [None]
  - DIARRHOEA HAEMORRHAGIC [None]
  - ENTEROCOLITIS INFECTIOUS [None]
  - GENERAL PHYSICAL HEALTH DETERIORATION [None]
  - INTERNATIONAL NORMALISED RATIO INCREASED [None]
  - PERITONEAL DISORDER [None]
